FAERS Safety Report 19086343 (Version 1)
Quarter: 2021Q2

REPORT INFORMATION
  Report Type: Spontaneous
  Country: US (occurrence: US)
  Receive Date: 20210402
  Receipt Date: 20210402
  Transmission Date: 20210717
  Serious: Yes (Life-Threatening, Hospitalization, Other)
  Sender: FDA-Public Use
  Company Number: US-HQ SPECIALTY-US-2021INT000050

PATIENT
  Age: 85 Year
  Sex: Female

DRUGS (2)
  1. PROPOFOL. [Suspect]
     Active Substance: PROPOFOL
     Indication: SEDATIVE THERAPY
     Dosage: (16 UG/KG,1 MIN)
     Route: 065
  2. DEXMEDETOMIDINE HYDROCHLORIDE. [Suspect]
     Active Substance: DEXMEDETOMIDINE HYDROCHLORIDE
     Indication: SEDATIVE THERAPY
     Dosage: (0.6 UG/KG,1 HR)
     Route: 065

REACTIONS (3)
  - Drug interaction [Unknown]
  - Atrioventricular block second degree [Recovered/Resolved]
  - Hypotension [Recovered/Resolved]
